FAERS Safety Report 18276278 (Version 1)
Quarter: 2020Q3

REPORT INFORMATION
  Report Type: Spontaneous
  Country: DE (occurrence: DE)
  Receive Date: 20200917
  Receipt Date: 20200917
  Transmission Date: 20201103
  Serious: Yes (Other)
  Sender: FDA-Public Use
  Company Number: DE-SA-2020SA233594

PATIENT

DRUGS (10)
  1. RAMIPRIL. [Concomitant]
     Active Substance: RAMIPRIL
     Indication: HYPERTENSION
  2. NEBIVOLOL. [Concomitant]
     Active Substance: NEBIVOLOL
     Indication: HYPERTENSION
  3. METHYLPREDNISOLONE. [Concomitant]
     Active Substance: METHYLPREDNISOLONE
     Indication: ANTIINFLAMMATORY THERAPY
  4. LEFLUNOMIDE. [Suspect]
     Active Substance: LEFLUNOMIDE
     Indication: IMMUNOSUPPRESSANT DRUG THERAPY
  5. XIPAMIDE [Concomitant]
     Active Substance: XIPAMIDE
     Indication: HYPERTENSION
  6. METHYLPREDNISOLONE. [Concomitant]
     Active Substance: METHYLPREDNISOLONE
     Indication: IMMUNOSUPPRESSANT DRUG THERAPY
  7. INSULIN [Concomitant]
     Active Substance: INSULIN NOS
     Dosage: UNK
  8. LEFLUNOMIDE. [Suspect]
     Active Substance: LEFLUNOMIDE
     Indication: RHEUMATOID ARTHRITIS
     Dosage: UNK
     Route: 065
  9. LEFLUNOMIDE. [Suspect]
     Active Substance: LEFLUNOMIDE
     Indication: ANTIINFLAMMATORY THERAPY
  10. LEVOTHYROXINE. [Concomitant]
     Active Substance: LEVOTHYROXINE
     Indication: THYROID HORMONE REPLACEMENT THERAPY
     Dosage: UNK

REACTIONS (11)
  - General physical health deterioration [Recovered/Resolved]
  - Gamma-glutamyltransferase increased [Recovered/Resolved]
  - Gastritis erosive [Recovered/Resolved]
  - Intestinal intraepithelial lymphocytes increased [Recovered/Resolved]
  - Leukocytosis [Recovered/Resolved]
  - Blood creatinine increased [Recovered/Resolved]
  - Colitis microscopic [Recovered/Resolved]
  - Diarrhoea [Recovered/Resolved]
  - Weight decreased [Recovered/Resolved]
  - Colitis [Recovered/Resolved]
  - C-reactive protein increased [Recovered/Resolved]
